FAERS Safety Report 6256414-0 (Version None)
Quarter: 2009Q2

REPORT INFORMATION
  Report Type: 
  Country: None (occurrence: None)
  Receive Date: 20090630
  Receipt Date: 20090630
  Transmission Date: 20091009
  Serious: Yes (Life-Threatening, Disabling)
  Sender: FDA-Public Use
  Company Number: None

PATIENT
  Age: 71 Year
  Sex: Male
  Weight: 106.5953 kg

DRUGS (1)
  1. NUBAIN [Suspect]
     Indication: PAIN
     Dosage: ONCE
     Dates: start: 20090626, end: 20090626

REACTIONS (4)
  - ASTHENIA [None]
  - BURNING SENSATION [None]
  - MUSCLE DISORDER [None]
  - MYALGIA [None]
